FAERS Safety Report 26041102 (Version 1)
Quarter: 2025Q4

REPORT INFORMATION
  Report Type: Spontaneous
  Country: CN (occurrence: CN)
  Receive Date: 20251113
  Receipt Date: 20251113
  Transmission Date: 20260117
  Serious: Yes (Other)
  Sender: DAIICHI
  Company Number: CN-DSJP-DS-2025-175346-CN

PATIENT
  Age: 57 Year
  Sex: Female
  Weight: 57 kg

DRUGS (3)
  1. TRASTUZUMAB DERUXTECAN [Suspect]
     Active Substance: TRASTUZUMAB DERUXTECAN
     Indication: Chemotherapy
     Dosage: 300 MG, QD
     Route: 041
     Dates: start: 20251017, end: 20251017
  2. XELODA [Suspect]
     Active Substance: CAPECITABINE
     Indication: Chemotherapy
     Dosage: 1.5 G, BID
     Route: 048
     Dates: start: 20251017, end: 20251031
  3. TORIPALIMAB [Suspect]
     Active Substance: TORIPALIMAB
     Indication: Chemotherapy
     Dosage: 240 MG, QD
     Route: 041
     Dates: start: 20251017, end: 20251017

REACTIONS (5)
  - Myelosuppression [Unknown]
  - White blood cell count decreased [Recovering/Resolving]
  - Neutrophil count decreased [Recovering/Resolving]
  - Anaemia [Recovering/Resolving]
  - Red blood cell count decreased [Recovering/Resolving]

NARRATIVE: CASE EVENT DATE: 20251105
